FAERS Safety Report 14273940 (Version 1)
Quarter: 2017Q4

REPORT INFORMATION
  Report Type: Spontaneous
  Country: US (occurrence: US)
  Receive Date: 20171211
  Receipt Date: 20171211
  Transmission Date: 20180321
  Serious: Yes (Death, Hospitalization)
  Sender: FDA-Public Use
  Company Number: US-OTSUKA-DJ20070135

PATIENT
  Age: 90 Year
  Sex: Female

DRUGS (3)
  1. ABILIFY [Suspect]
     Active Substance: ARIPIPRAZOLE
     Indication: PSYCHOTIC DISORDER
     Dosage: 20 MG, UNK
     Route: 065
     Dates: start: 200609, end: 200609
  2. ABILIFY [Suspect]
     Active Substance: ARIPIPRAZOLE
     Indication: DEMENTIA
     Dosage: 15 MG, UNK
     Route: 065
     Dates: start: 20060831, end: 200609
  3. ABILIFY [Suspect]
     Active Substance: ARIPIPRAZOLE
     Dosage: 30 MG, UNK
     Route: 065
     Dates: start: 200609, end: 200609

REACTIONS (4)
  - Heart rate irregular [Fatal]
  - Fall [Unknown]
  - Decreased activity [Unknown]
  - Performance status decreased [Unknown]

NARRATIVE: CASE EVENT DATE: 200609
